FAERS Safety Report 9285013 (Version 3)
Quarter: 2013Q3

REPORT INFORMATION
  Report Type: Spontaneous
  Country: US (occurrence: US)
  Receive Date: 20130513
  Receipt Date: 20130703
  Transmission Date: 20140515
  Serious: Yes (Hospitalization, Other)
  Sender: FDA-Public Use
  Company Number: PHEH2013US010329

PATIENT
  Age: 68 Year
  Sex: Female
  Weight: 63.39 kg

DRUGS (10)
  1. EXJADE [Suspect]
     Indication: MYELOFIBROSIS
     Dosage: 1500 MG, QD
     Route: 048
     Dates: start: 20130316, end: 20130328
  2. EXJADE [Suspect]
     Dosage: 1500 MG, QD
     Route: 048
  3. AMIODARONE [Concomitant]
     Dosage: UNK UKN, UNK
  4. ASPIRIN [Concomitant]
  5. ALLOPURINOL [Concomitant]
  6. ACETAMINOPHEN [Concomitant]
  7. POTASSIUM CHLORIDE [Concomitant]
  8. ATENOLOL [Concomitant]
     Dosage: UNK UKN, UNK
  9. DILTIAZEM [Concomitant]
     Dosage: UNK UKN, UNK
  10. DIGOXIN [Concomitant]

REACTIONS (5)
  - Arrhythmia [Recovering/Resolving]
  - Kidney small [Unknown]
  - Splenomegaly [Unknown]
  - Weight decreased [Not Recovered/Not Resolved]
  - Diarrhoea [Not Recovered/Not Resolved]
